FAERS Safety Report 5553476-0 (Version None)
Quarter: 2007Q4

REPORT INFORMATION
  Report Type: 
  Country: None (occurrence: None)
  Receive Date: 20071211
  Receipt Date: 20071127
  Transmission Date: 20080405
  Serious: Yes (Other)
  Sender: FDA-Public Use
  Company Number: S07-USA-06106-02

PATIENT

DRUGS (2)
  1. LEXAPRO [Suspect]
  2. LEXAPRO [Suspect]

REACTIONS (1)
  - CONVULSION [None]
